FAERS Safety Report 5612849-8 (Version None)
Quarter: 2008Q1

REPORT INFORMATION
  Report Type: 
  Country: None (occurrence: None)
  Receive Date: 20080204
  Receipt Date: 20080125
  Transmission Date: 20080703
  Serious: Yes (Other)
  Sender: FDA-Public Use
  Company Number: US-PFIZER INC-2007068298

PATIENT
  Sex: Female

DRUGS (6)
  1. DILANTIN [Suspect]
     Indication: CONVULSION
     Dosage: DAILY DOSE:50MG
  2. LIPITOR [Suspect]
     Indication: BLOOD CHOLESTEROL INCREASED
     Dosage: DAILY DOSE:10MG
  3. CALCIUM GLUCONATE [Concomitant]
  4. FOSAMAX [Concomitant]
  5. PHENOBARBITAL TAB [Concomitant]
  6. NASONEX [Concomitant]

REACTIONS (5)
  - GALLBLADDER OPERATION [None]
  - GINGIVAL HYPERPLASIA [None]
  - GLAUCOMA [None]
  - SURGERY [None]
  - WEIGHT DECREASED [None]
